FAERS Safety Report 10461685 (Version 1)
Quarter: 2014Q3

REPORT INFORMATION
  Report Type: Spontaneous
  Country: GB (occurrence: GB)
  Receive Date: 20140918
  Receipt Date: 20140918
  Transmission Date: 20150326
  Serious: Yes (Other)
  Sender: FDA-Public Use
  Company Number: PHHY2014GB119803

PATIENT
  Age: 80 Year
  Sex: Female
  Weight: 69 kg

DRUGS (20)
  1. AMOXICILLIN. [Concomitant]
     Active Substance: AMOXICILLIN
     Dosage: UNK UKN, UNK (5 DAY)
     Dates: start: 20140717, end: 20140722
  2. CLOPIDOGREL [Concomitant]
     Active Substance: CLOPIDOGREL BISULFATE
     Dosage: UNK UKN, UNK (60 DAY)
     Dates: start: 20140506, end: 20140705
  3. CO-AMOXICLAV [Concomitant]
     Active Substance: AMOXICILLIN\CLAVULANIC ACID
     Dosage: UNK UKN, UNK (7 DAY)
     Dates: start: 20140801, end: 20140808
  4. ASPIRIN. [Concomitant]
     Active Substance: ASPIRIN
     Dosage: UNK UKN, UNK
     Dates: start: 20140407
  5. LOSARTAN [Concomitant]
     Active Substance: LOSARTAN
     Dosage: UNK UKN, UNK
     Dates: start: 20140506
  6. NITROMIN//GLYCERYL TRINITRATE [Concomitant]
     Dosage: UNK UKN, UNK
     Dates: start: 20140128
  7. PREDNISOLONE. [Concomitant]
     Active Substance: PREDNISOLONE
     Dosage: UNK UKN, UNK
     Dates: start: 20140717
  8. DIPYRIDAMOLE. [Concomitant]
     Active Substance: DIPYRIDAMOLE
     Dosage: UNK UKN, UNK
     Dates: start: 20140717
  9. HYDROCORTISONE. [Concomitant]
     Active Substance: HYDROCORTISONE
     Dosage: UNK UKN, UNK (10 DAY)
     Dates: start: 20140612, end: 20140822
  10. TRIMETHOPRIM. [Concomitant]
     Active Substance: TRIMETHOPRIM
     Dosage: UNK UKN, UNK (3 DAY)
     Dates: start: 20140610, end: 20140613
  11. CO-BENELDOPA [Concomitant]
     Active Substance: BENSERAZIDE HYDROCHLORIDE\LEVODOPA
     Dosage: UNK UKN, UNK
     Dates: start: 20140602
  12. QUININE [Concomitant]
     Active Substance: QUININE
     Dosage: UNK UKN, UNK
     Dates: start: 20140506
  13. SIMVASTATIN. [Concomitant]
     Active Substance: SIMVASTATIN
     Dosage: UNK UKN, UNK
     Dates: start: 20140602
  14. ENTACAPONE. [Suspect]
     Active Substance: ENTACAPONE
     Dosage: 200 MG, TID
  15. BUDESONIDE. [Concomitant]
     Active Substance: BUDESONIDE
     Dosage: UNK UKN, UNK (60 DAY)
     Dates: start: 20140506, end: 20140705
  16. CALCICHEW D3 [Concomitant]
     Active Substance: CALCIUM\CHOLECALCIFEROL
     Dosage: UNK UKN, UNK
     Dates: start: 20140506
  17. CETIRIZINE [Concomitant]
     Active Substance: CETIRIZINE HYDROCHLORIDE
     Dosage: UNK UKN, UNK (30 DAY)
     Dates: start: 20140612, end: 20140712
  18. DOXYCYCLINE. [Concomitant]
     Active Substance: DOXYCYCLINE
     Dosage: UNK UKN, UNK (21 DAY)
     Dates: start: 20140527, end: 20140617
  19. HARTMANN^S SOLUTION [Concomitant]
     Active Substance: CALCIUM CHLORIDE\POTASSIUM CHLORIDE\SODIUM CHLORIDE\SODIUM LACTATE
     Dosage: UNK UKN, UNK (5 DAY)
     Dates: start: 20140801, end: 20140806
  20. LANSOPRAZOLE. [Concomitant]
     Active Substance: LANSOPRAZOLE
     Dosage: UNK UKN, UNK
     Dates: start: 20140506

REACTIONS (1)
  - Faeces discoloured [Recovered/Resolved]

NARRATIVE: CASE EVENT DATE: 20140825
